FAERS Safety Report 5101202-1 (Version None)
Quarter: 2006Q3

REPORT INFORMATION
  Report Type: 
  Country: None (occurrence: None)
  Receive Date: 20060911
  Receipt Date: 20060616
  Transmission Date: 20061208
  Serious: Yes (Disabling)
  Sender: FDA-Public Use
  Company Number: FR-AMGEN-UK183177

PATIENT
  Sex: Female
  Weight: 62 kg

DRUGS (10)
  1. MIMPARA [Suspect]
     Indication: HYPERPARATHYROIDISM SECONDARY
     Route: 048
     Dates: start: 20051201
  2. INSULATARD NPH HUMAN [Concomitant]
     Route: 065
  3. SPECIAFOLDINE [Concomitant]
     Route: 065
  4. CALCIUM CARBONATE [Concomitant]
     Route: 065
  5. VERAPAMIL [Concomitant]
     Route: 065
  6. KAYEXALATE [Concomitant]
     Route: 065
  7. ALLOPURINOL [Concomitant]
     Route: 065
  8. LASILIX [Concomitant]
     Route: 065
  9. HYPERIUM [Concomitant]
     Route: 065
  10. MICARDIS [Concomitant]
     Route: 065

REACTIONS (2)
  - DIABETIC RETINOPATHY [None]
  - VISION BLURRED [None]
